FAERS Safety Report 22796213 (Version 2)
Quarter: 2025Q2

REPORT INFORMATION
  Report Type: Spontaneous
  Country: PT (occurrence: PT)
  Receive Date: 20230808
  Receipt Date: 20250505
  Transmission Date: 20250716
  Serious: Yes (Hospitalization, Other)
  Sender: AUROBINDO
  Company Number: PT-SANDOZ-SDZ2023PT004672

PATIENT
  Age: 24 Year
  Sex: Female

DRUGS (1)
  1. FUROSEMIDE [Suspect]
     Active Substance: FUROSEMIDE
     Indication: Product used for unknown indication
     Dosage: 40 MILLIGRAM, ONCE A DAY
     Route: 065

REACTIONS (9)
  - Drug abuse [Unknown]
  - Hyperaldosteronism [Unknown]
  - Hypokalaemia [Unknown]
  - Anorexia nervosa [Unknown]
  - Hyponatraemia [Unknown]
  - Pseudo-Bartter syndrome [Unknown]
  - Hypochloraemia [Unknown]
  - Metabolic alkalosis [Unknown]
  - Renin increased [Unknown]
